FAERS Safety Report 8860561 (Version 2)
Quarter: 2013Q1

REPORT INFORMATION
  Report Type: Spontaneous
  Country: US (occurrence: US)
  Receive Date: 20121025
  Receipt Date: 20130115
  Transmission Date: 20140127
  Serious: Yes (Hospitalization, Other)
  Sender: FDA-Public Use
  Company Number: US-PFIZER INC-2012264286

PATIENT
  Age: 41 Year
  Sex: Female
  Weight: 113 kg

DRUGS (2)
  1. DILANTIN [Suspect]
     Indication: CONVULSION
     Dosage: UNK
     Dates: start: 2011
  2. DILANTIN [Suspect]
     Dosage: 100 MG, SIX TIMES A DAY

REACTIONS (2)
  - Drug ineffective [Unknown]
  - Hypertension [Unknown]
